FAERS Safety Report 14243600 (Version 1)
Quarter: 2017Q4

REPORT INFORMATION
  Report Type: Report from Study
  Country: None (occurrence: GB)
  Receive Date: 20171201
  Receipt Date: 20171201
  Transmission Date: 20180321
  Serious: Yes (Life-Threatening, Hospitalization)
  Sender: FDA-Public Use
  Company Number: GB-ABBVIE-17P-167-2175676-00

PATIENT
  Age: 71 Year
  Sex: Male

DRUGS (20)
  1. BORTEZOMIB [Suspect]
     Active Substance: BORTEZOMIB
     Indication: PLASMA CELL MYELOMA
     Dosage: DAYS 1, 4, 8, AND 11 OF EACH 21-DAY CYCLE FOR CYCLES 1-8
     Route: 058
     Dates: start: 20170217, end: 20170317
  2. BORTEZOMIB [Suspect]
     Active Substance: BORTEZOMIB
     Dosage: DAYS 1, 4, 8, AND 11 OF EACH 21-DAY CYCLE FOR CYCLES 1-8
     Route: 058
     Dates: start: 20170331, end: 20170428
  3. BORTEZOMIB [Suspect]
     Active Substance: BORTEZOMIB
     Dosage: DAYS 1, 4, 8, AND 11 OF EACH 21-DAY CYCLE FOR CYCLES 1-8
     Route: 058
     Dates: start: 20170512, end: 20170724
  4. DEXAMETHASONE. [Suspect]
     Active Substance: DEXAMETHASONE
     Dosage: DAYS 1, 2, 4, 5, 8, 9, 11, AND 12 OF EACH 21-DAY CYCLE FOR CYCLES 1-8
     Route: 048
     Dates: start: 20170331, end: 20170725
  5. SODIUM CLODRONATE [Concomitant]
     Active Substance: CLODRONIC ACID
     Indication: PROPHYLAXIS
     Route: 048
     Dates: start: 2005
  6. CODEINE [Concomitant]
     Active Substance: CODEINE
     Indication: BONE PAIN
  7. PLACEBO [Suspect]
     Active Substance: UNSPECIFIED INGREDIENT
     Route: 048
     Dates: start: 20170331, end: 20170725
  8. BORTEZOMIB [Suspect]
     Active Substance: BORTEZOMIB
     Dosage: DAYS 1, 8, 15, AND 22 OF EACH 35-DAY CYCLE FOR CYCLES 9 AND BEYOND
     Route: 058
     Dates: start: 20170804
  9. ALLOPURINOL. [Concomitant]
     Active Substance: ALLOPURINOL
     Indication: GOUT
     Route: 048
     Dates: start: 20170217
  10. GAVISCON [Concomitant]
     Active Substance: ALUMINUM HYDROXIDE\MAGNESIUM CARBONATE
     Indication: DYSPEPSIA
     Route: 048
     Dates: start: 2017
  11. DEXAMETHASONE. [Suspect]
     Active Substance: DEXAMETHASONE
     Dosage: DAYS 1, 2, 8, 9, 15, 16, 22, AND 23 OF EACH 35-DAY CYCLE FOR CYCLES 9 AND BEYOND
     Route: 048
     Dates: start: 20170804
  12. ACYCLOVIR. [Concomitant]
     Active Substance: ACYCLOVIR
     Indication: ANTIVIRAL PROPHYLAXIS
     Route: 048
     Dates: start: 20170217
  13. COTRIMOXAZOLE [Concomitant]
     Active Substance: SULFAMETHOXAZOLE\TRIMETHOPRIM
     Indication: PROPHYLAXIS
     Dosage: MONDAY, WEDNESDAY, AND FRIDAY
     Route: 048
     Dates: start: 20170217
  14. PLACEBO [Suspect]
     Active Substance: UNSPECIFIED INGREDIENT
     Indication: PLASMA CELL MYELOMA
     Route: 048
     Dates: start: 20170217, end: 20170320
  15. PLACEBO [Suspect]
     Active Substance: UNSPECIFIED INGREDIENT
     Route: 048
     Dates: start: 20170804, end: 20171121
  16. DEXAMETHASONE. [Suspect]
     Active Substance: DEXAMETHASONE
     Indication: PLASMA CELL MYELOMA
     Dosage: DAYS 1, 2, 4, 5, 8, 9, 11, AND 12 OF EACH 21-DAY CYCLE FOR CYCLES 1-8
     Route: 048
     Dates: start: 20170217, end: 20170320
  17. DOMPERIDONE [Concomitant]
     Active Substance: DOMPERIDONE
     Indication: PROPHYLAXIS
     Route: 048
     Dates: start: 20170217
  18. LACTULOSE. [Concomitant]
     Active Substance: LACTULOSE
     Indication: CONSTIPATION
     Route: 048
     Dates: start: 20170419
  19. CODEINE [Concomitant]
     Active Substance: CODEINE
     Indication: BACK PAIN
     Route: 048
     Dates: start: 20170424
  20. RANITIDINE. [Concomitant]
     Active Substance: RANITIDINE
     Indication: PROPHYLAXIS
     Route: 048
     Dates: start: 20170217

REACTIONS (2)
  - Lower respiratory tract infection [Not Recovered/Not Resolved]
  - Sepsis [Not Recovered/Not Resolved]

NARRATIVE: CASE EVENT DATE: 20171122
